FAERS Safety Report 4621326-2 (Version None)
Quarter: 2005Q1

REPORT INFORMATION
  Report Type: 
  Country: None (occurrence: None)
  Receive Date: 20050323
  Receipt Date: 20050323
  Transmission Date: 20050727
  Serious: Yes (Other)
  Sender: FDA-Public Use
  Company Number: None

PATIENT
  Age: 38 Year
  Sex: Female

DRUGS (2)
  1. EFFEXOR XR [Suspect]
     Indication: DEPRESSION
     Dosage: 112.5 MG PO DAILY
     Route: 048
     Dates: start: 20050214, end: 20050310
  2. KLONOPIN [Concomitant]

REACTIONS (3)
  - BRUXISM [None]
  - CONVULSION [None]
  - TREMOR [None]
